FAERS Safety Report 10007944 (Version 2)
Quarter: 2014Q3

REPORT INFORMATION
  Report Type: Spontaneous
  Country: DE (occurrence: DE)
  Receive Date: 20140313
  Receipt Date: 20140707
  Transmission Date: 20150326
  Serious: Yes (Death, Hospitalization)
  Sender: FDA-Public Use
  Company Number: GXKR2014DE001233

PATIENT

DRUGS (6)
  1. AMOXICILLIN / CLAVULANSAURE [Suspect]
     Active Substance: AMOXICILLIN\CLAVULANIC ACID
     Dosage: UNK UKN, UNK
     Dates: start: 20120407
  2. VALPROIC ACID. [Suspect]
     Active Substance: VALPROIC ACID
     Route: 040
     Dates: start: 20120409, end: 20120524
  3. OMEPRAZOLE. [Suspect]
     Active Substance: OMEPRAZOLE
     Dosage: UNK
     Dates: start: 20120407
  4. VALPROIC ACID. [Suspect]
     Active Substance: VALPROIC ACID
     Indication: EPILEPSY
     Dosage: DAILY DOSE: 630 MG MILLGRAM(S) EVERY DAYS
     Route: 048
     Dates: start: 2010, end: 20120408
  5. METAMIZOLE [Suspect]
     Active Substance: METAMIZOLE
     Dosage: UNK UKN, UNK
     Dates: start: 20120407
  6. TOBRAMYCIN [Suspect]
     Active Substance: TOBRAMYCIN
     Dosage: UNK
     Dates: start: 20120407

REACTIONS (1)
  - Pancytopenia [Fatal]

NARRATIVE: CASE EVENT DATE: 201204
